FAERS Safety Report 14824673 (Version 1)
Quarter: 2018Q2

REPORT INFORMATION
  Report Type: Spontaneous
  Country: CA (occurrence: CA)
  Receive Date: 20180429
  Receipt Date: 20180429
  Transmission Date: 20180711
  Serious: No
  Sender: FDA-Public Use
  Company Number: CA-ANIPHARMA-2017-CA-000464

PATIENT
  Age: 51 Year
  Sex: Female

DRUGS (6)
  1. XELJANZ [Suspect]
     Active Substance: TOFACITINIB CITRATE
     Dosage: 5 MG TWICE DAILY
     Route: 048
     Dates: start: 20161119
  2. INDERAL LA [Suspect]
     Active Substance: PROPRANOLOL HYDROCHLORIDE
     Dosage: 80 MG ONCE DAILY
     Route: 048
  3. IMOVANE [Concomitant]
     Active Substance: ZOPICLONE
     Dosage: 7.5 MG ONCE DAILY AT BEDTIME
     Route: 048
  4. CYMBALTA [Concomitant]
     Active Substance: DULOXETINE HYDROCHLORIDE
     Dosage: 120 MG DAILY
     Route: 048
  5. HYDROMORPHONE [Concomitant]
     Active Substance: HYDROMORPHONE
     Dosage: 6 MG 3 TIMES DAILY AS NEEDED
     Route: 048
  6. ELAVIL /00002202 [Concomitant]
     Dosage: 25 MG DAILY
     Route: 048

REACTIONS (2)
  - Chest pain [Unknown]
  - Hernia [Unknown]
